FAERS Safety Report 26123112 (Version 1)
Quarter: 2025Q4

REPORT INFORMATION
  Report Type: Spontaneous
  Country: US (occurrence: US)
  Receive Date: 20251204
  Receipt Date: 20251204
  Transmission Date: 20260119
  Serious: Yes (Other)
  Sender: Harrow Health
  Company Number: US-HARROW-HAR-2025-US-01677

PATIENT
  Age: 74 Year
  Sex: Male

DRUGS (4)
  1. VIGAMOX [Suspect]
     Active Substance: MOXIFLOXACIN HYDROCHLORIDE
     Dosage: 1 DROP X 3 Q5MIN
     Route: 047
     Dates: start: 20251110
  2. cyclogel [Concomitant]
  3. PHENYLEPHRINE [Concomitant]
     Active Substance: PHENYLEPHRINE
  4. TETRACAINE [Concomitant]
     Active Substance: TETRACAINE

REACTIONS (1)
  - Endophthalmitis [Unknown]
